FAERS Safety Report 6383542-1 (Version None)
Quarter: 2009Q4

REPORT INFORMATION
  Report Type: 
  Country: None (occurrence: None)
  Receive Date: 20091001
  Receipt Date: 20090923
  Transmission Date: 20100525
  Serious: Yes (Hospitalization, Other)
  Sender: FDA-Public Use
  Company Number: US-ROCHE-658650

PATIENT
  Age: 54 Year
  Sex: Female

DRUGS (2)
  1. BONIVA [Suspect]
     Indication: OSTEOPOROSIS
     Route: 048
     Dates: start: 20080301
  2. CALCIUM SUPPLEMENT [Concomitant]
     Dosage: HIGH QUALITY EASILY DIGESTED CALCIUM SUPPLEMENT
     Dates: start: 19990101

REACTIONS (3)
  - BONE DISORDER [None]
  - FALL [None]
  - FEMUR FRACTURE [None]
